FAERS Safety Report 22393678 (Version 1)
Quarter: 2023Q2

REPORT INFORMATION
  Report Type: Spontaneous
  Country: IN (occurrence: IN)
  Receive Date: 20230601
  Receipt Date: 20230601
  Transmission Date: 20230722
  Serious: Yes (Other)
  Sender: FDA-Public Use
  Company Number: IN-PFIZER INC-2019361569

PATIENT
  Age: 65 Year
  Sex: Female

DRUGS (17)
  1. PALBOCICLIB [Suspect]
     Active Substance: PALBOCICLIB
     Indication: Breast cancer metastatic
     Dosage: 125 MG, CYCLIC (ONCE DAILY (OD) FOR 21 DAYS, THEN 7 DAYS OFF)
     Route: 048
     Dates: start: 20190718
  2. PALBOCICLIB [Suspect]
     Active Substance: PALBOCICLIB
     Dosage: 100 MG, DAILY
     Route: 048
  3. PALBOCICLIB [Suspect]
     Active Substance: PALBOCICLIB
     Dosage: 125 MG, CYCLIC
     Route: 048
  4. PALBOCICLIB [Suspect]
     Active Substance: PALBOCICLIB
     Dosage: 100 MG, 1X/DAY
     Route: 048
  5. PALBOCICLIB [Suspect]
     Active Substance: PALBOCICLIB
     Dosage: UNK
     Route: 048
     Dates: start: 20221011, end: 20221102
  6. PALBOCICLIB [Suspect]
     Active Substance: PALBOCICLIB
     Dosage: UNK
     Dates: start: 20221224, end: 20230114
  7. PALBOCICLIB [Suspect]
     Active Substance: PALBOCICLIB
     Dosage: UNK
     Dates: start: 20230126, end: 20230215
  8. PALBOCICLIB [Suspect]
     Active Substance: PALBOCICLIB
     Dosage: 125 MG, 1X/DAY(OD)
     Route: 048
  9. PALBOCICLIB [Suspect]
     Active Substance: PALBOCICLIB
     Dosage: 100 MG
     Route: 048
  10. FULVESTRANT [Concomitant]
     Active Substance: FULVESTRANT
     Indication: Breast cancer metastatic
     Dosage: 500 MG
     Route: 030
     Dates: start: 20190718
  11. FULVESTRANT [Concomitant]
     Active Substance: FULVESTRANT
     Dosage: 500 MG
     Route: 030
     Dates: start: 20190801
  12. FULVESTRANT [Concomitant]
     Active Substance: FULVESTRANT
     Dosage: 500 MG, DAILY
     Route: 030
  13. FULVESTRANT [Concomitant]
     Active Substance: FULVESTRANT
     Dosage: UNK, MONTHLY
     Dates: start: 20211113
  14. FULVESTRANT [Concomitant]
     Active Substance: FULVESTRANT
     Dosage: UNK
     Dates: start: 20221004
  15. LETROZOLE [Concomitant]
     Active Substance: LETROZOLE
     Dosage: UNK
  16. CALCIUM\CHOLECALCIFEROL [Concomitant]
     Active Substance: CALCIUM\CHOLECALCIFEROL
     Dosage: UNK
  17. OSTEO PLUS [CALCITRIOL;CALCIUM CITRATE MALATE;LEVOMEFOLIC ACID;MAGNESI [Concomitant]
     Dosage: UNK

REACTIONS (12)
  - Neutropenia [Unknown]
  - Anaemia [Unknown]
  - Leukopenia [Unknown]
  - Thrombocytopenia [Unknown]
  - Diabetes mellitus [Unknown]
  - Asthenia [Unknown]
  - Hepatomegaly [Unknown]
  - Neoplasm progression [Unknown]
  - Mouth ulceration [Unknown]
  - Blood glucose decreased [Unknown]
  - Platelet count decreased [Unknown]
  - White blood cell count decreased [Unknown]
